FAERS Safety Report 8419452-5 (Version None)
Quarter: 2012Q2

REPORT INFORMATION
  Report Type: 
  Country: None (occurrence: None)
  Receive Date: 20120607
  Receipt Date: 20120530
  Transmission Date: 20120825
  Serious: Yes (Hospitalization)
  Sender: FDA-Public Use
  Company Number: FR-GLAXOSMITHKLINE-B0804734A

PATIENT
  Sex: Female

DRUGS (8)
  1. REQUIP [Suspect]
     Indication: PARKINSON'S DISEASE
     Route: 048
     Dates: start: 20080501, end: 20120326
  2. LYRICA [Suspect]
     Indication: MYALGIA
     Dosage: 50MG TWICE PER DAY
     Route: 048
     Dates: start: 20120307
  3. CLONAZEPAM [Concomitant]
     Route: 065
     Dates: start: 20110101
  4. LEXOMIL [Concomitant]
     Route: 065
  5. STALEVO 100 [Suspect]
     Indication: PARKINSON'S DISEASE
     Dosage: 1TAB FOUR TIMES PER DAY
     Route: 048
     Dates: start: 20090101
  6. AZILECT [Concomitant]
     Dosage: 1MG PER DAY
     Route: 065
     Dates: start: 20081001
  7. MODOPAR [Suspect]
     Indication: PARKINSON'S DISEASE
     Dosage: 125MG AS REQUIRED
     Route: 048
     Dates: end: 20120326
  8. MORPHINE SULFATE [Suspect]
     Indication: MYALGIA
     Dosage: 5MG SINGLE DOSE
     Route: 048
     Dates: start: 20120325, end: 20120325

REACTIONS (7)
  - CONFUSIONAL STATE [None]
  - LIBIDO INCREASED [None]
  - AGITATION [None]
  - PERSECUTORY DELUSION [None]
  - DELUSION [None]
  - ANXIETY [None]
  - DISSOCIATIVE FUGUE [None]
